FAERS Safety Report 7780978-9 (Version None)
Quarter: 2011Q3

REPORT INFORMATION
  Report Type: 
  Country: None (occurrence: None)
  Receive Date: 20110923
  Receipt Date: 20110908
  Transmission Date: 20111222
  Serious: Yes (Hospitalization)
  Sender: FDA-Public Use
  Company Number: GB-ACCORD-009788

PATIENT
  Age: 22 Year
  Sex: Female
  Weight: 80 kg

DRUGS (14)
  1. CANDESARTAN CILEXETIL [Concomitant]
  2. DOXYCYCLINE [Concomitant]
  3. FOLIC ACID [Concomitant]
  4. OMEPRAZOLE [Concomitant]
  5. DAPSONE [Concomitant]
  6. PREDNISOLONE [Concomitant]
  7. METHOTREXATE [Concomitant]
  8. MYCOPHENOLATE MOFETIL [Suspect]
     Indication: WEGENER'S GRANULOMATOSIS
     Dosage: 1.00-G-3.00 TIMES PER 1.0 DAYS
     Dates: start: 20070201
  9. ENALAPRIL MALEATE [Concomitant]
  10. ONDANSETRON [Concomitant]
  11. WARFARIN SODIUM [Concomitant]
  12. ALENDRONATE SODIUM [Concomitant]
  13. CALCICHEW (CALCICHEW) [Concomitant]
  14. SODIUM BICARBONATE IN PLASTIC CONTAINER [Concomitant]

REACTIONS (5)
  - CONDITION AGGRAVATED [None]
  - INCORRECT DOSE ADMINISTERED [None]
  - OFF LABEL USE [None]
  - WEGENER'S GRANULOMATOSIS [None]
  - DRUG INEFFECTIVE [None]
